FAERS Safety Report 17975640 (Version 1)
Quarter: 2020Q3

REPORT INFORMATION
  Report Type: Report from Study
  Country: IL (occurrence: IL)
  Receive Date: 20200702
  Receipt Date: 20200702
  Transmission Date: 20201103
  Serious: Yes (Other)
  Sender: FDA-Public Use
  Company Number: NVSC2020IL182628

PATIENT
  Age: 29 Year
  Sex: Female

DRUGS (1)
  1. COSENTYX [Suspect]
     Active Substance: SECUKINUMAB
     Indication: PSORIASIS
     Dosage: 300 MG, QW
     Route: 058
     Dates: start: 20200623

REACTIONS (6)
  - Helicobacter infection [Unknown]
  - Dyspnoea [Not Recovered/Not Resolved]
  - Concomitant disease aggravated [Recovering/Resolving]
  - Injection site pain [Not Recovered/Not Resolved]
  - Asthenia [Recovering/Resolving]
  - Nausea [Recovering/Resolving]

NARRATIVE: CASE EVENT DATE: 20200621
